FAERS Safety Report 8183433-X (Version None)
Quarter: 2012Q1

REPORT INFORMATION
  Report Type: 
  Country: None (occurrence: None)
  Receive Date: 20120305
  Receipt Date: 20120303
  Transmission Date: 20120608
  Serious: Yes (Other)
  Sender: FDA-Public Use
  Company Number: US-PFIZER INC-2012057171

PATIENT
  Sex: Male
  Weight: 84.807 kg

DRUGS (4)
  1. CHANTIX [Suspect]
     Dosage: UNK
     Dates: start: 20120101
  2. OXYCODONE [Concomitant]
     Indication: INTERVERTEBRAL DISC PROTRUSION
  3. OXYCODONE [Concomitant]
     Indication: BACK PAIN
     Dosage: UNK, 2X/DAY
  4. CHANTIX [Suspect]
     Indication: SMOKING CESSATION THERAPY
     Dosage: 0.5 MG, DAILY
     Dates: start: 20120101, end: 20120101

REACTIONS (7)
  - PAROSMIA [None]
  - DYSGEUSIA [None]
  - APATHY [None]
  - HYPERTENSION [None]
  - ABNORMAL DREAMS [None]
  - PANIC ATTACK [None]
  - PAIN IN EXTREMITY [None]
